FAERS Safety Report 17965609 (Version 1)
Quarter: 2020Q2

REPORT INFORMATION
  Report Type: Spontaneous
  Country: FR (occurrence: FR)
  Receive Date: 20200630
  Receipt Date: 20200630
  Transmission Date: 20200714
  Serious: No
  Sender: FDA-Public Use
  Company Number: FR-JAZZ-2020-FR-004981

PATIENT

DRUGS (4)
  1. LERCANIDIPINE [Concomitant]
     Active Substance: LERCANIDIPINE
  2. ATTENTIN [DEXAMFETAMINE SULFATE] [Suspect]
     Active Substance: DEXTROAMPHETAMINE SULFATE
     Indication: HYPERSOMNIA
     Dosage: UNKNOWN DOSE
     Route: 048
     Dates: start: 20170119
  3. RITALINE [Suspect]
     Active Substance: METHYLPHENIDATE HYDROCHLORIDE
     Indication: HYPERSOMNIA
     Route: 048
  4. XYREM [Suspect]
     Active Substance: SODIUM OXYBATE
     Indication: HYPERSOMNIA
     Dosage: 7 MILLIGRAM
     Route: 048

REACTIONS (3)
  - Tachycardia [Recovered/Resolved]
  - Hypertension [Recovered/Resolved]
  - Off label use [Unknown]
